FAERS Safety Report 10918244 (Version 2)
Quarter: 2015Q3

REPORT INFORMATION
  Report Type: Spontaneous
  Country: US (occurrence: US)
  Receive Date: 20150316
  Receipt Date: 20150908
  Transmission Date: 20151125
  Serious: Yes (Other)
  Sender: FDA-Public Use
  Company Number: US-ASTELLAS-2015US000103

PATIENT
  Age: 64 Year
  Sex: Male

DRUGS (2)
  1. XTANDI [Suspect]
     Active Substance: ENZALUTAMIDE
     Indication: PROSTATE CANCER
     Route: 048
     Dates: start: 20141211
  2. XTANDI [Suspect]
     Active Substance: ENZALUTAMIDE
     Indication: METASTASES TO BONE

REACTIONS (12)
  - Pain [Unknown]
  - Nausea [Unknown]
  - Hot flush [Unknown]
  - Loss of consciousness [Unknown]
  - Constipation [Unknown]
  - Chills [Unknown]
  - Decreased appetite [Unknown]
  - Fatigue [Unknown]
  - Seizure [Unknown]
  - Weight decreased [Unknown]
  - Prostatic specific antigen abnormal [Unknown]
  - Hyperhidrosis [Unknown]

NARRATIVE: CASE EVENT DATE: 201412
